FAERS Safety Report 10080529 (Version 1)
Quarter: 2014Q2

REPORT INFORMATION
  Report Type: Spontaneous
  Country: US (occurrence: US)
  Receive Date: 20140416
  Receipt Date: 20140416
  Transmission Date: 20141212
  Serious: Yes (Hospitalization, Other)
  Sender: FDA-Public Use
  Company Number: US-BRISTOL-MYERS SQUIBB COMPANY-20630612

PATIENT
  Age: 42 Year
  Sex: Female

DRUGS (2)
  1. ABILIFY [Suspect]
     Indication: SCHIZOAFFECTIVE DISORDER
     Dosage: START:2006-2007
     Dates: start: 2006, end: 201309
  2. LAMOTRIGINE [Concomitant]

REACTIONS (3)
  - Delusion [Recovered/Resolved]
  - Adverse event [Unknown]
  - Off label use [Recovered/Resolved]
